FAERS Safety Report 10425397 (Version 2)
Quarter: 2014Q4

REPORT INFORMATION
  Report Type: Spontaneous
  Country: US (occurrence: None)
  Receive Date: 20140725
  Receipt Date: 20141023
  Transmission Date: 20150528
  Serious: No
  Sender: FDA-Public Use
  Company Number: AP356-00721-SPO-US

PATIENT
  Age: 34 Year
  Sex: Female
  Weight: 99 kg

DRUGS (2)
  1. ONE-A-DAY VITAMIN (ONE A DAY) [Concomitant]
  2. BELVIQ [Suspect]
     Active Substance: LORCASERIN HYDROCHLORIDE
     Indication: WEIGHT CONTROL
     Dosage: 20 MG,  2 IN 1 D, ORAL
     Route: 048
     Dates: start: 201308, end: 201308

REACTIONS (1)
  - Migraine [None]

NARRATIVE: CASE EVENT DATE: 201308
